FAERS Safety Report 12233856 (Version 1)
Quarter: 2016Q2

REPORT INFORMATION
  Report Type: Report from Study
  Country: JP (occurrence: JP)
  Receive Date: 20160404
  Receipt Date: 20160404
  Transmission Date: 20160815
  Serious: Yes (Hospitalization)
  Sender: FDA-Public Use
  Company Number: JP-EISAI MEDICAL RESEARCH-EC-2016-015768

PATIENT
  Age: 75 Year
  Sex: Female
  Weight: 44 kg

DRUGS (3)
  1. LENVIMA [Suspect]
     Active Substance: LENVATINIB
     Indication: POORLY DIFFERENTIATED THYROID CARCINOMA
     Route: 048
     Dates: start: 20150805, end: 20150820
  2. LENVIMA [Suspect]
     Active Substance: LENVATINIB
     Route: 048
     Dates: start: 20150907, end: 20151006
  3. LEVOTHYROXINE SODIUM HYDRATE [Concomitant]

REACTIONS (1)
  - Gingivitis [Recovering/Resolving]

NARRATIVE: CASE EVENT DATE: 20150818
